FAERS Safety Report 12370029 (Version 4)
Quarter: 2016Q2

REPORT INFORMATION
  Report Type: Report from Study
  Country: US (occurrence: US)
  Receive Date: 20160516
  Receipt Date: 20160603
  Transmission Date: 20160815
  Serious: Yes (Death, Hospitalization)
  Sender: FDA-Public Use
  Company Number: US-TAIHO ONCOLOGY INC-EU-2016-00919

PATIENT
  Age: 36 Year
  Sex: Male

DRUGS (1)
  1. LONSURF [Suspect]
     Active Substance: TIPIRACIL HYDROCHLORIDE\TRIFLURIDINE
     Indication: COLORECTAL CANCER METASTATIC
     Route: 048
     Dates: start: 20160411, end: 20160418

REACTIONS (8)
  - Dyspnoea [Unknown]
  - Hypoglycaemia [Unknown]
  - Multiple organ dysfunction syndrome [Fatal]
  - Disease progression [Fatal]
  - Cardiac failure [Fatal]
  - Tachycardia [Unknown]
  - Liver function test increased [Unknown]
  - Acute respiratory failure [Fatal]

NARRATIVE: CASE EVENT DATE: 201604
